FAERS Safety Report 4464140-3 (Version None)
Quarter: 2004Q3

REPORT INFORMATION
  Report Type: 
  Country: None (occurrence: None)
  Receive Date: 20040929
  Receipt Date: 20040929
  Transmission Date: 20050211
  Serious: Yes (Disabling)
  Sender: FDA-Public Use
  Company Number: None

PATIENT
  Age: 25 Year
  Sex: Female
  Weight: 58.9676 kg

DRUGS (2)
  1. MIDOL [Suspect]
     Indication: DYSMENORRHOEA
     Dosage: 2 PILLS  EVERY 6 HOURS  ORAL
     Route: 048
     Dates: start: 20040823, end: 20040823
  2. MIDOL [Suspect]
     Indication: DYSMENORRHOEA
     Dosage: 2 PILLS  EVERY 6 HOURS  ORAL
     Route: 048
     Dates: start: 20040928, end: 20040928

REACTIONS (3)
  - INCOHERENT [None]
  - MEDICATION ERROR [None]
  - SOMNOLENCE [None]
